FAERS Safety Report 9493723 (Version 2)
Quarter: 2013Q3

REPORT INFORMATION
  Report Type: Spontaneous
  Country: BR (occurrence: BR)
  Receive Date: 20130902
  Receipt Date: 20130904
  Transmission Date: 20140515
  Serious: Yes (Death, Other)
  Sender: FDA-Public Use
  Company Number: BR-PFIZER INC-2013249252

PATIENT
  Age: 37 Year
  Sex: Female

DRUGS (1)
  1. SUTENT [Suspect]
     Indication: RENAL CELL CARCINOMA
     Dosage: 50 MG 1X/DAY, CYCLIC (4 PER 2)
     Route: 048
     Dates: start: 20130813

REACTIONS (7)
  - Disease progression [Fatal]
  - Renal cell carcinoma [Fatal]
  - Loss of consciousness [Not Recovered/Not Resolved]
  - Renal failure [Not Recovered/Not Resolved]
  - Sedation [Not Recovered/Not Resolved]
  - Limb injury [Not Recovered/Not Resolved]
  - Decubitus ulcer [Not Recovered/Not Resolved]
